FAERS Safety Report 24770502 (Version 1)
Quarter: 2024Q4

REPORT INFORMATION
  Report Type: Spontaneous
  Country: ID (occurrence: ID)
  Receive Date: 20241224
  Receipt Date: 20241224
  Transmission Date: 20250114
  Serious: Yes (Other)
  Sender: RANBAXY
  Company Number: ID-SUN PHARMACEUTICAL INDUSTRIES LTD-2024RR-484783

PATIENT
  Age: 24 Year
  Sex: Male

DRUGS (3)
  1. SERTRALINE [Suspect]
     Active Substance: SERTRALINE HYDROCHLORIDE
     Indication: Anxiety
     Dosage: 50 MILLIGRAM, UNK
     Route: 065
  2. CLOBAZAM [Suspect]
     Active Substance: CLOBAZAM
     Indication: Anxiety
     Dosage: 10 MILLIGRAM, UNK
     Route: 065
  3. SULPIRIDE [Suspect]
     Active Substance: SULPIRIDE
     Indication: Anxiety
     Dosage: 50 MILLIGRAM, UNK
     Route: 065

REACTIONS (4)
  - Anxiety [Unknown]
  - Tongue geographic [Unknown]
  - Dry mouth [Unknown]
  - Cheilitis [Unknown]
